FAERS Safety Report 9041680 (Version 1)
Quarter: 2013Q1

REPORT INFORMATION
  Report Type: Report from Study
  Country: US (occurrence: US)
  Receive Date: 20130129
  Receipt Date: 20130129
  Transmission Date: 20140127
  Serious: No
  Sender: FDA-Public Use
  Company Number: US-ABBOTT-12P-163-0903468-00

PATIENT
  Sex: Male

DRUGS (2)
  1. HUMIRA 40 MG/ 0.8 ML PRE-FILLED SYRINGE [Suspect]
     Indication: PSORIASIS
     Dosage: CURASCRIPT FEB 2011, OFF OF IT FOR 3 WKS TEMPORARILY STOPPED
     Route: 058
     Dates: end: 201102
  2. HUMIRA 40 MG/ 0.8 ML PRE-FILLED SYRINGE [Suspect]

REACTIONS (2)
  - Skin lesion [Not Recovered/Not Resolved]
  - Pigmentation disorder [Not Recovered/Not Resolved]
